FAERS Safety Report 9460391 (Version 1)
Quarter: 2013Q3

REPORT INFORMATION
  Report Type: Spontaneous
  Country: FR (occurrence: FR)
  Receive Date: 20130815
  Receipt Date: 20130815
  Transmission Date: 20140515
  Serious: Yes (Other)
  Sender: FDA-Public Use
  Company Number: FR-PFIZER INC-2013231346

PATIENT
  Age: 83 Year
  Sex: Female

DRUGS (2)
  1. CRIZOTINIB [Suspect]
     Dosage: UNK
     Dates: start: 20130115
  2. CRIZOTINIB [Suspect]
     Dosage: 500 MG DAILY

REACTIONS (2)
  - Cerebral haemorrhage [Unknown]
  - Nervous system disorder [Unknown]
